FAERS Safety Report 8386649-2 (Version None)
Quarter: 2012Q2

REPORT INFORMATION
  Report Type: 
  Country: None (occurrence: None)
  Receive Date: 20120525
  Receipt Date: 20120523
  Transmission Date: 20120825
  Serious: Yes (Other)
  Sender: FDA-Public Use
  Company Number: US-PFIZER INC-2012125184

PATIENT
  Sex: Female
  Weight: 54.422 kg

DRUGS (1)
  1. ALAVERT [Suspect]
     Indication: HYPERSENSITIVITY
     Dosage: UNK, AS NEEDED
     Route: 048
     Dates: start: 20120501

REACTIONS (3)
  - PALPITATIONS [None]
  - CARDIAC FLUTTER [None]
  - FEELING ABNORMAL [None]
